FAERS Safety Report 20769182 (Version 1)
Quarter: 2022Q2

REPORT INFORMATION
  Report Type: Spontaneous
  Country: US (occurrence: US)
  Receive Date: 20220429
  Receipt Date: 20220429
  Transmission Date: 20220721
  Serious: Yes (Hospitalization, Other)
  Sender: FDA-Public Use
  Company Number: US-SLATE RUN PHARMACEUTICALS-22US001058

PATIENT

DRUGS (9)
  1. AZITHROMYCIN [Suspect]
     Active Substance: AZITHROMYCIN
     Indication: Nasal obstruction
     Dosage: UNK
  2. AZITHROMYCIN [Suspect]
     Active Substance: AZITHROMYCIN
     Indication: Nasal congestion
  3. AZITHROMYCIN [Suspect]
     Active Substance: AZITHROMYCIN
     Indication: Facial pain
  4. AMOXICILLIN [Concomitant]
     Active Substance: AMOXICILLIN
     Indication: Nasal obstruction
  5. AMOXICILLIN [Concomitant]
     Active Substance: AMOXICILLIN
     Indication: Nasal congestion
  6. AMOXICILLIN [Concomitant]
     Active Substance: AMOXICILLIN
     Indication: Facial pain
  7. PREDNISONE [Concomitant]
     Active Substance: PREDNISONE
     Indication: Nasal obstruction
  8. PREDNISONE [Concomitant]
     Active Substance: PREDNISONE
     Indication: Nasal congestion
  9. PREDNISONE [Concomitant]
     Active Substance: PREDNISONE
     Indication: Facial pain

REACTIONS (5)
  - Bone tuberculosis [Recovered/Resolved]
  - Alpha haemolytic streptococcal infection [Recovered/Resolved]
  - Therapy non-responder [Unknown]
  - Exophthalmos [Recovered/Resolved]
  - Off label use [Unknown]
